FAERS Safety Report 7720908-9 (Version None)
Quarter: 2011Q3

REPORT INFORMATION
  Report Type: 
  Country: None (occurrence: None)
  Receive Date: 20110825
  Receipt Date: 20110805
  Transmission Date: 20111222
  Serious: Yes (Hospitalization)
  Sender: FDA-Public Use
  Company Number: 15868235

PATIENT
  Age: 86 Year
  Sex: Male

DRUGS (9)
  1. DAFLON (DIOSMIN) [Concomitant]
  2. ENALAPRIL MALEATE [Concomitant]
  3. PLACEBO [Suspect]
     Indication: EMBOLISM
     Route: 048
     Dates: start: 20110331
  4. AMLODIPINE [Concomitant]
  5. APIXABAN [Suspect]
     Indication: EMBOLISM
     Dosage: 10 MILLIGRAM 1 WEWK
     Route: 048
     Dates: start: 20110331, end: 20110625
  6. TIOTROPIUM BROMIDE (TIOTROPIUM BROMIDE) [Concomitant]
  7. WARFARIN SODIUM [Suspect]
     Indication: EMBOLISM
     Dosage: 10 MILLIGRAM 1 DAY
     Route: 048
     Dates: start: 20110331, end: 20110625
  8. ENOXAPARIN SODIUM [Suspect]
     Indication: EMBOLISM
     Dosage: 1 DOSAGE FORM
     Route: 058
     Dates: start: 20110331, end: 20110409
  9. LACTULOSE [Concomitant]

REACTIONS (21)
  - ELECTROCARDIOGRAM Q WAVE ABNORMAL [None]
  - SOMNOLENCE [None]
  - ADJUSTMENT DISORDER [None]
  - HAEMORRHOIDS [None]
  - LOWER GASTROINTESTINAL HAEMORRHAGE [None]
  - VENTRICULAR EXTRASYSTOLES [None]
  - DIVERTICULUM INTESTINAL [None]
  - DECREASED APPETITE [None]
  - SCOLIOSIS [None]
  - NAUSEA [None]
  - CHRONIC OBSTRUCTIVE PULMONARY DISEASE [None]
  - HEAD INJURY [None]
  - LACERATION [None]
  - RED BLOOD CELL COUNT DECREASED [None]
  - DIZZINESS POSTURAL [None]
  - BUNDLE BRANCH BLOCK RIGHT [None]
  - HAEMATOMA [None]
  - WEIGHT DECREASED [None]
  - POLYP [None]
  - LETHARGY [None]
  - CONDITION AGGRAVATED [None]
